FAERS Safety Report 19690958 (Version 1)
Quarter: 2021Q3

REPORT INFORMATION
  Report Type: Spontaneous
  Country: IN (occurrence: IN)
  Receive Date: 20210812
  Receipt Date: 20210812
  Transmission Date: 20211014
  Serious: Yes (Hospitalization, Other)
  Sender: FDA-Public Use
  Company Number: IN-MYLANLABS-11P-078-0720672-00

PATIENT
  Age: 66 Year
  Sex: Male

DRUGS (21)
  1. ERYTHROMYCIN. [Interacting]
     Active Substance: ERYTHROMYCIN
     Indication: ENTERAL NUTRITION
     Dosage: 250 MILLIGRAM, Q4D
     Route: 065
  2. FENTANYL. [Concomitant]
     Active Substance: FENTANYL
     Indication: INDUCTION OF ANAESTHESIA
  3. CEFTRIAXONE W/SULBACTAM [Concomitant]
     Indication: SUPPORTIVE CARE
     Dosage: UNK
  4. ENOXAPARIN [Concomitant]
     Active Substance: ENOXAPARIN
     Indication: SUPPORTIVE CARE
     Dosage: 40 MILLIGRAM, QD
     Route: 065
  5. METRONIDAZOLE. [Concomitant]
     Active Substance: METRONIDAZOLE
     Indication: SUPPORTIVE CARE
     Dosage: UNK
  6. ERYTHROMYCIN. [Interacting]
     Active Substance: ERYTHROMYCIN
     Indication: GASTROINTESTINAL MOTILITY DISORDER
  7. VECURONIUM                         /00600002/ [Concomitant]
     Indication: INDUCTION OF ANAESTHESIA
  8. VECURONIUM                         /00600002/ [Concomitant]
     Indication: ANAESTHESIA
     Dosage: UNK
     Route: 065
  9. PANTOPRAZOLE [Concomitant]
     Active Substance: PANTOPRAZOLE
     Indication: SUPPORTIVE CARE
     Dosage: UNK
     Route: 065
  10. SEVOFLURANE. [Concomitant]
     Active Substance: SEVOFLURANE
     Indication: INDUCTION OF ANAESTHESIA
     Dosage: 2?2.5%
     Route: 065
  11. MIDAZOLAM. [Suspect]
     Active Substance: MIDAZOLAM
     Indication: SEDATIVE THERAPY
     Dosage: 5 MILLIGRAM, QH (2?3 MG INFUSION (CUMULATIVE DOSE: 46MG)
     Route: 065
  12. METOCLOPRAMIDE. [Concomitant]
     Active Substance: METOCLOPRAMIDE
     Indication: ENTERAL NUTRITION
     Dosage: 10 MILLIGRAM, BID
     Route: 042
  13. ITOPRIDE [Concomitant]
     Active Substance: ITOPRIDE
     Indication: GASTROINTESTINAL MOTILITY DISORDER
     Dosage: 50 MILLIGRAM, QD
     Route: 065
  14. MIDAZOLAM. [Interacting]
     Active Substance: MIDAZOLAM
     Indication: INDUCTION OF ANAESTHESIA
  15. FENTANYL. [Concomitant]
     Active Substance: FENTANYL
     Indication: ANAESTHESIA
     Dosage: 500 MICROGRAM
     Route: 065
  16. METOCLOPRAMIDE. [Concomitant]
     Active Substance: METOCLOPRAMIDE
     Indication: GASTROINTESTINAL MOTILITY DISORDER
  17. NOREPINEPHRINE. [Concomitant]
     Active Substance: NOREPINEPHRINE
     Indication: SUPPORTIVE CARE
     Dosage: UNK
     Route: 065
  18. FLUMAZENIL. [Concomitant]
     Active Substance: FLUMAZENIL
     Dosage: 200 MICROGRAM
     Route: 065
  19. ERYTHROMYCIN. [Interacting]
     Active Substance: ERYTHROMYCIN
     Indication: ILEUS PARALYTIC
  20. METOCLOPRAMIDE. [Concomitant]
     Active Substance: METOCLOPRAMIDE
     Indication: ILEUS PARALYTIC
  21. CLOPIDOGREL/ASPIRIN SANDOZ [Concomitant]
     Indication: SUPPORTIVE CARE
     Dosage: UNK
     Route: 065

REACTIONS (2)
  - Sedation complication [Recovered/Resolved]
  - Drug interaction [Recovered/Resolved]
